FAERS Safety Report 7924375 (Version 5)
Quarter: 2012Q4

REPORT INFORMATION
  Report Type: Report from Study
  Country: DE (occurrence: DE)
  Receive Date: 20110502
  Receipt Date: 20121218
  Transmission Date: 20130627
  Serious: Yes (Other)
  Sender: FDA-Public Use
  Company Number: DE-JNJFOC-20110411319

PATIENT
  Age: 77 Year
  Sex: Female
  Weight: 84 kg

DRUGS (6)
  1. PALEXIA [Suspect]
     Indication: ARTHRALGIA
     Route: 065
     Dates: start: 20101203, end: 20101222
  2. PANTOPRAZOLE [Concomitant]
     Indication: GASTROINTESTINAL DISORDER THERAPY
     Route: 065
     Dates: start: 20101203, end: 20101222
  3. DICLOFENAC [Concomitant]
     Indication: OSTEOARTHRITIS
     Dates: end: 20101203
  4. VOMEX A [Concomitant]
     Route: 065
  5. METAMIZOL [Concomitant]
     Route: 065
  6. TARGIN [Concomitant]
     Route: 065

REACTIONS (2)
  - Abdominal pain upper [Recovered/Resolved]
  - Nausea [Recovered/Resolved]
